FAERS Safety Report 6101076-6 (Version None)
Quarter: 2009Q1

REPORT INFORMATION
  Report Type: 
  Country: None (occurrence: None)
  Receive Date: 20090224
  Receipt Date: 20090219
  Transmission Date: 20090719
  Serious: Yes (Other)
  Sender: FDA-Public Use
  Company Number: A0769467A

PATIENT
  Age: 52 Year
  Sex: Female

DRUGS (1)
  1. SODIUM FLUORIDE + POTASSIUM NITRATE TOOTHPASTE (SODIUM FLUORIDE + POTA [Suspect]
     Indication: DENTAL CARE
     Dosage: DENTAL
     Route: 004
     Dates: start: 20090201

REACTIONS (6)
  - DYSPHONIA [None]
  - MOUTH HAEMORRHAGE [None]
  - ORAL DISCOMFORT [None]
  - OROPHARYNGEAL PAIN [None]
  - PHARYNGEAL HAEMORRHAGE [None]
  - THROAT IRRITATION [None]
